FAERS Safety Report 10407808 (Version 2)
Quarter: 2014Q3

REPORT INFORMATION
  Report Type: Spontaneous
  Country: DE (occurrence: DE)
  Receive Date: 20140825
  Receipt Date: 20140925
  Transmission Date: 20150326
  Serious: Yes (Hospitalization, Other)
  Sender: FDA-Public Use
  Company Number: DE-GILEAD-2014-0112437

PATIENT
  Age: 13 Year
  Sex: Female
  Weight: 44 kg

DRUGS (17)
  1. KREON                              /00014701/ [Concomitant]
     Active Substance: PANCRELIPASE
     Dosage: 75000 IU, UNK
     Route: 048
  2. URSODEOXYCHOLZUUR [Concomitant]
     Dosage: 800 MG, QD
     Route: 048
  3. VIGANTOLETTEN [Concomitant]
     Active Substance: CHOLECALCIFEROL
     Dosage: 2000 IU, UNK
     Route: 048
  4. ACETYLCYSTEIN [Concomitant]
     Active Substance: ACETYLCYSTEINE
     Dosage: 400 MG, QD
     Route: 048
  5. TOBRAMYCIN [Concomitant]
     Active Substance: TOBRAMYCIN
     Dosage: 480 MG, QD
     Route: 042
     Dates: start: 20140812, end: 20140825
  6. CALCIUM [Concomitant]
     Active Substance: CALCIUM
     Dosage: 300 MG, QD
     Route: 048
  7. MAGNESIUM [Concomitant]
     Active Substance: MAGNESIUM
     Dosage: 40 MG, QD
     Route: 048
  8. IPRATROPIUM [Concomitant]
     Active Substance: IPRATROPIUM
     Dosage: 45 DF, QD
     Route: 055
  9. PULMOZYME [Concomitant]
     Active Substance: DORNASE ALFA
     Dosage: 2500 IU, UNK
     Route: 055
  10. FLUCLOXACILLIN [Concomitant]
     Active Substance: FLUCLOXACILLIN
     Dosage: UNK
     Route: 042
     Dates: start: 20140806, end: 20140812
  11. AZITHROMYCIN [Concomitant]
     Active Substance: AZITHROMYCIN ANHYDROUS
     Dosage: 250 MG, UNK
     Route: 048
  12. PIPERACILLIN AND TAZOBACTAM [Concomitant]
     Active Substance: PIPERACILLIN SODIUM\TAZOBACTAM SODIUM
     Dosage: 15 G, QD
     Route: 042
     Dates: start: 20140812, end: 20140825
  13. SALBUTAMOL [Concomitant]
     Active Substance: ALBUTEROL
     Dosage: 24 GTT, UNK
     Route: 055
  14. CAYSTON [Suspect]
     Active Substance: AZTREONAM
     Indication: PSEUDOMONAS INFECTION
     Dosage: 225 MG, QD
     Route: 055
     Dates: start: 20140814
  15. NEBUSAL [Concomitant]
     Dosage: 12 ML, QD
     Route: 055
  16. MULTIBIONTA NUTRITION              /07517601/ [Concomitant]
     Dosage: 5 GTT, UNK
     Route: 048
  17. IBUPROFEN. [Concomitant]
     Active Substance: IBUPROFEN
     Dosage: 1200 MG, PRN
     Route: 048

REACTIONS (6)
  - Bronchial secretion retention [Recovered/Resolved]
  - Oxygen saturation decreased [Unknown]
  - Dyspnoea [Recovered/Resolved]
  - Lung infiltration [Unknown]
  - Chest discomfort [Unknown]
  - Forced expiratory volume decreased [Unknown]

NARRATIVE: CASE EVENT DATE: 201408
